FAERS Safety Report 18166590 (Version 3)
Quarter: 2020Q3

REPORT INFORMATION
  Report Type: Spontaneous
  Country: US (occurrence: US)
  Receive Date: 20200819
  Receipt Date: 20200819
  Transmission Date: 20201103
  Serious: Yes (Other)
  Sender: FDA-Public Use
  Company Number: ALC2019US002731

PATIENT

DRUGS (5)
  1. ISOPTO CARPINE [Suspect]
     Active Substance: PILOCARPINE HYDROCHLORIDE
     Indication: PRODUCT USED FOR UNKNOWN INDICATION
     Dosage: UNK
     Route: 065
  2. TIMOLOL. [Concomitant]
     Active Substance: TIMOLOL
     Indication: PRODUCT USED FOR UNKNOWN INDICATION
     Route: 065
  3. DORZOLAMIDE TIMOLOL [Concomitant]
     Active Substance: DORZOLAMIDE
     Indication: PRODUCT USED FOR UNKNOWN INDICATION
     Route: 065
  4. KETOROLAC [Concomitant]
     Active Substance: KETOROLAC TROMETHAMINE
     Indication: PRODUCT USED FOR UNKNOWN INDICATION
     Route: 065
  5. BRIMONIDINE [Concomitant]
     Active Substance: BRIMONIDINE TARTRATE
     Indication: PRODUCT USED FOR UNKNOWN INDICATION
     Route: 065

REACTIONS (4)
  - Memory impairment [Unknown]
  - Intraocular pressure increased [Unknown]
  - Cerebrovascular accident [Unknown]
  - Mydriasis [Unknown]
